FAERS Safety Report 6721499-1 (Version None)
Quarter: 2010Q2

REPORT INFORMATION
  Report Type: 
  Country: None (occurrence: None)
  Receive Date: 20100510
  Receipt Date: 20091209
  Transmission Date: 20101027
  Serious: Yes (Hospitalization)
  Sender: FDA-Public Use
  Company Number: 07-002298

PATIENT
  Age: 37 Year
  Sex: Male

DRUGS (4)
  1. DOVONEX CREAM (CALCIPOTRIOL) (CREAM) [Suspect]
     Dosage: TOPICAL
     Route: 061
     Dates: start: 20070423, end: 20070425
  2. FAZOL (ISOCONAZOLE NITRATE) [Suspect]
     Dosage: TOPICAL
     Route: 061
     Dates: start: 20070416, end: 20070421
  3. EURAX [Suspect]
     Dosage: TOPICAL
     Route: 061
     Dates: start: 20070416, end: 20070421
  4. LOCOID (HYDROCORTISONE) [Suspect]
     Dosage: TOPICAL
     Route: 061
     Dates: start: 20070423, end: 20070425

REACTIONS (2)
  - DERMATOSIS [None]
  - OFF LABEL USE [None]
